FAERS Safety Report 6015791-6 (Version None)
Quarter: 2008Q4

REPORT INFORMATION
  Report Type: 
  Country: None (occurrence: None)
  Receive Date: 20081222
  Receipt Date: 20081210
  Transmission Date: 20090506
  Serious: Yes (Hospitalization)
  Sender: FDA-Public Use
  Company Number: FR-AMGEN-UK323138

PATIENT
  Sex: Male

DRUGS (13)
  1. NEULASTA [Suspect]
     Route: 030
     Dates: start: 20071109
  2. PEMETREXED DISODIUM [Suspect]
     Dates: start: 20071120
  3. PLAVIX [Concomitant]
     Dates: start: 20040901
  4. SIMVASTATIN [Concomitant]
     Dates: start: 20040901
  5. ENDOTELON [Concomitant]
     Dates: start: 20040901
  6. RIVOTRIL [Concomitant]
     Dates: start: 20070901
  7. DEPAKENE [Concomitant]
     Dates: start: 20070901
  8. SPECIAFOLDINE [Concomitant]
     Dates: start: 20070901
  9. SOLUPRED [Concomitant]
     Dates: start: 20071120
  10. PRIMPERAN TAB [Concomitant]
     Dates: start: 20071120
  11. ZOPHREN [Concomitant]
     Dates: start: 20071120
  12. POLARAMINE [Concomitant]
     Route: 042
     Dates: start: 20080108
  13. KESTINE [Concomitant]

REACTIONS (1)
  - ANGIOEDEMA [None]
